FAERS Safety Report 5426978-5 (Version None)
Quarter: 2007Q3

REPORT INFORMATION
  Report Type: 
  Country: None (occurrence: None)
  Receive Date: 20070827
  Receipt Date: 20070817
  Transmission Date: 20080115
  Serious: Yes (Other)
  Sender: FDA-Public Use
  Company Number: US-MERCK-0708USA04117

PATIENT
  Age: 54 Year
  Sex: Male

DRUGS (5)
  1. PRINIVIL [Suspect]
     Indication: HYPERTENSION
     Route: 048
  2. AMLODIPINE BESYLATE [Concomitant]
     Indication: HYPERTENSION
     Route: 065
  3. SPIRONOLACTONE [Concomitant]
     Indication: FLUID RETENTION
     Route: 065
  4. FUROSEMIDE [Concomitant]
     Indication: FLUID RETENTION
     Route: 065
  5. BLOOD, WHOLE [Suspect]
     Indication: LIVER TRANSPLANT
     Route: 065

REACTIONS (1)
  - TRANSFUSION REACTION [None]
